FAERS Safety Report 8783445 (Version 1)
Quarter: 2012Q4

REPORT INFORMATION
  Report Type: 
  Country: CH (occurrence: CH)
  Receive Date: 20120913
  Receipt Date: 20120913
  Transmission Date: 20130627
  Serious: Yes (Death)
  Sender: FDA-Public Use
  Company Number: CH-CELGENEUS-151-50794-12090225

PATIENT
  Age: 76 Year

DRUGS (2)
  1. VIDAZA [Suspect]
     Indication: ACUTE MYELOID LEUKEMIA
     Route: 058
  2. LEUPRORELIN [Concomitant]
     Indication: PROSTATE CANCER
     Route: 065

REACTIONS (1)
  - Acute myeloid leukaemia [Fatal]
